FAERS Safety Report 17531678 (Version 1)
Quarter: 2020Q1

REPORT INFORMATION
  Report Type: Spontaneous
  Country: US (occurrence: US)
  Receive Date: 20200311
  Receipt Date: 20200311
  Transmission Date: 20200409
  Serious: No
  Sender: FDA-Public Use
  Company Number: None

PATIENT
  Age: 40 Year
  Sex: Female
  Weight: 60.75 kg

DRUGS (5)
  1. ETONOGESTREL/ETHINYL ESTRADIOL [Suspect]
     Active Substance: ETHINYL ESTRADIOL\ETONOGESTREL
     Indication: CONTRACEPTION
     Dosage: ?          OTHER STRENGTH:MG/DAY;QUANTITY:1 RING;OTHER FREQUENCY:21 DAYS ON/7 DAYS;?
     Route: 067
     Dates: start: 20200112
  2. ALLEGRA-D [Concomitant]
     Active Substance: FEXOFENADINE\PSEUDOEPHEDRINE
  3. MULTIVITAMIN [Concomitant]
     Active Substance: VITAMINS
  4. SYNTHROID [Concomitant]
     Active Substance: LEVOTHYROXINE SODIUM
  5. VITAMIN B12 [Concomitant]
     Active Substance: CYANOCOBALAMIN

REACTIONS (5)
  - Lip pain [None]
  - Gingivitis [None]
  - Product substitution issue [None]
  - Gingival pain [None]
  - Hyperaesthesia teeth [None]

NARRATIVE: CASE EVENT DATE: 20200122
